FAERS Safety Report 18178030 (Version 1)
Quarter: 2020Q3

REPORT INFORMATION
  Report Type: Report from Study
  Country: GB (occurrence: GB)
  Receive Date: 20200821
  Receipt Date: 20200821
  Transmission Date: 20201103
  Serious: Yes (Other)
  Sender: FDA-Public Use
  Company Number: GB-SAMSUNG BIOEPIS-SB-2020-26355

PATIENT
  Age: 76 Year
  Sex: Male

DRUGS (1)
  1. IMRALDI [Suspect]
     Active Substance: ADALIMUMAB
     Indication: PSORIATIC ARTHROPATHY
     Route: 058

REACTIONS (4)
  - Cough [Unknown]
  - Suspected COVID-19 [Unknown]
  - Influenza like illness [Unknown]
  - Pyrexia [Unknown]

NARRATIVE: CASE EVENT DATE: 20200626
